FAERS Safety Report 24099453 (Version 3)
Quarter: 2024Q3

REPORT INFORMATION
  Report Type: Report from Study
  Country: US (occurrence: US)
  Receive Date: 20240716
  Receipt Date: 20240913
  Transmission Date: 20241016
  Serious: No
  Sender: JOHNSON AND JOHNSON
  Company Number: US-JNJFOC-20240729773

PATIENT
  Age: 61 Year
  Sex: Male

DRUGS (9)
  1. SPRAVATO [Suspect]
     Active Substance: ESKETAMINE
     Indication: Depression
     Dosage: ^56 MG, 5 TOTAL DOSES^
     Dates: start: 20221019, end: 20221103
  2. SPRAVATO [Suspect]
     Active Substance: ESKETAMINE
     Dosage: ^84 MG, 52 TOTAL DOSES^
     Dates: start: 20221109, end: 20231128
  3. SPRAVATO [Suspect]
     Active Substance: ESKETAMINE
     Dosage: ^56 MG, 1 TOTAL DOSE^
     Dates: start: 20231205, end: 20231205
  4. SPRAVATO [Suspect]
     Active Substance: ESKETAMINE
     Dosage: ^84 MG, 56 TOTAL DOSES^
     Dates: start: 20231212, end: 20240626
  5. SPRAVATO [Suspect]
     Active Substance: ESKETAMINE
     Dosage: ^UNSPECIFIED DOSE, 1 TOTAL DOSE^
     Dates: start: 202406, end: 202406
  6. SPRAVATO [Suspect]
     Active Substance: ESKETAMINE
     Dosage: ^84 MG, 3 TOTAL DOSES^
     Dates: start: 20240628, end: 20240705
  7. SPRAVATO [Suspect]
     Active Substance: ESKETAMINE
     Dosage: ^84 MG, 1 TOTAL DOSE^, RECENT DOSE
     Dates: start: 20240710, end: 20240710
  8. WELLBUTRIN XL [Concomitant]
     Active Substance: BUPROPION HYDROCHLORIDE
     Indication: Major depression
     Route: 048
  9. ZOLOFT [Concomitant]
     Active Substance: SERTRALINE HYDROCHLORIDE
     Indication: Major depression
     Route: 048

REACTIONS (1)
  - Drug monitoring procedure not performed [Unknown]

NARRATIVE: CASE EVENT DATE: 20240710
